FAERS Safety Report 16623384 (Version 2)
Quarter: 2019Q3

REPORT INFORMATION
  Report Type: Report from Study
  Country: FR (occurrence: FR)
  Receive Date: 20190724
  Receipt Date: 20190903
  Transmission Date: 20191004
  Serious: Yes (Death, Hospitalization)
  Sender: FDA-Public Use
  Company Number: FR-ROCHE-2354763

PATIENT
  Age: 54 Year
  Sex: Male
  Weight: 89 kg

DRUGS (7)
  1. AMLOR [Concomitant]
     Active Substance: AMLODIPINE BESYLATE
  2. CABOZANTINIB [Suspect]
     Active Substance: CABOZANTINIB
     Indication: NON-SMALL CELL LUNG CANCER
     Dosage: DATE OF MOST RECENT DOSES OF CABOZANTINIB: 18/JUN/2019
     Route: 048
     Dates: start: 20190528
  3. NOVORAPID [Concomitant]
     Active Substance: INSULIN ASPART
  4. INNOHEP [Concomitant]
     Active Substance: TINZAPARIN SODIUM
  5. ABASAGLAR [Concomitant]
     Active Substance: INSULIN GLARGINE
  6. ATEZOLIZUMAB. [Suspect]
     Active Substance: ATEZOLIZUMAB
     Indication: NON-SMALL CELL LUNG CANCER
     Dosage: DATE OF MOST RECENT DOSES OF ATEZOLIZUMAB: 18/JUN/2019
     Route: 041
     Dates: start: 20190528
  7. LANSOPRAZOLE. [Concomitant]
     Active Substance: LANSOPRAZOLE

REACTIONS (3)
  - Dyspnoea [Not Recovered/Not Resolved]
  - Myocarditis [Fatal]
  - Pneumonitis [Fatal]

NARRATIVE: CASE EVENT DATE: 20190704
